FAERS Safety Report 4908087-4 (Version None)
Quarter: 2006Q1

REPORT INFORMATION
  Report Type: 
  Country: None (occurrence: None)
  Receive Date: 20060210
  Receipt Date: 20060201
  Transmission Date: 20060701
  Serious: Yes (Hospitalization)
  Sender: FDA-Public Use
  Company Number: 2006PK00290

PATIENT
  Age: 24566 Day
  Sex: Female

DRUGS (2)
  1. ARIMIDEX [Suspect]
     Route: 048
     Dates: start: 20051101
  2. SELENIUM SULFIDE [Concomitant]

REACTIONS (1)
  - PANCREATITIS ACUTE [None]
